FAERS Safety Report 19258968 (Version 1)
Quarter: 2021Q2

REPORT INFORMATION
  Report Type: Spontaneous
  Country: LB (occurrence: LB)
  Receive Date: 20210514
  Receipt Date: 20210514
  Transmission Date: 20210717
  Serious: Yes (Death)
  Sender: FDA-Public Use
  Company Number: LB-ROCHE-2817800

PATIENT
  Sex: Male
  Weight: 78 kg

DRUGS (14)
  1. ADRIAMYCIN [Suspect]
     Active Substance: DOXORUBICIN HYDROCHLORIDE
     Indication: B-CELL LYMPHOMA
     Dosage: DAY 4
     Route: 042
  2. UROMITEXAN [Suspect]
     Active Substance: MESNA
     Indication: B-CELL LYMPHOMA
     Dosage: DAY 1 DAY 2 AND DAY 3 ( TWO CYCLES 02/FEB/2021 AND 08/MAR/2021)
     Route: 042
  3. MESNA. [Suspect]
     Active Substance: MESNA
     Indication: B-CELL LYMPHOMA
     Dosage: DAY 1 TO DAY 4
     Route: 042
  4. LEUCOVORIN. [Suspect]
     Active Substance: LEUCOVORIN
     Indication: B-CELL LYMPHOMA
     Route: 042
  5. IFOSFAMIDE. [Suspect]
     Active Substance: IFOSFAMIDE
     Indication: B-CELL LYMPHOMA
     Dosage: DAY 1 DAY 2 AND DAY 3 (FOR TWO CYCLES 02/FEB/2021 AND 08/MAR/2021)
     Route: 042
  6. METHOTREXATE. [Suspect]
     Active Substance: METHOTREXATE
     Indication: B-CELL LYMPHOMA
     Dosage: DAY 1
     Route: 065
  7. MABTHERA [Suspect]
     Active Substance: RITUXIMAB
     Indication: B-CELL LYMPHOMA
     Dosage: RECEIVED 2 CYCLES 2/FEB/2021 AND 08/MAR/2021
     Route: 065
  8. CISPLATINE [Suspect]
     Active Substance: CISPLATIN
     Indication: B-CELL LYMPHOMA
     Dosage: DAY 1 DAY 2 DAY 3 DAY 4 DAY 5 (FOR TWO CYCLES 02/FEB/2021 AND 08/MAR/2021)
     Route: 065
  9. CYTARABINE. [Suspect]
     Active Substance: CYTARABINE
     Indication: B-CELL LYMPHOMA
     Dosage: DAY 2 AND DAY 3
     Route: 065
  10. VP?16 [Suspect]
     Active Substance: ETOPOSIDE
     Indication: B-CELL LYMPHOMA
     Dosage: DAY 1 DAY 2 AND DAY 3 (2 CYCLES FROM 02/FEB/2021 CYCLE 1; AND 08/MAR/2021 CYCLE 2
     Route: 065
  11. ENDOXAN [Suspect]
     Active Substance: CYCLOPHOSPHAMIDE
     Indication: B-CELL LYMPHOMA
     Dosage: 3 CYCLES (DAY 1 TO DAY 3)
     Route: 065
  12. DECADRON [Suspect]
     Active Substance: DEXAMETHASONE
     Indication: B-CELL LYMPHOMA
     Dosage: DAY 1 TO DAY 4
     Route: 042
  13. DECADRON [Suspect]
     Active Substance: DEXAMETHASONE
     Route: 065
  14. VINCRISTINE [Suspect]
     Active Substance: VINCRISTINE
     Indication: B-CELL LYMPHOMA
     Dosage: DAY 4 TO DAY 11
     Route: 042

REACTIONS (2)
  - Death [Fatal]
  - Therapy non-responder [Unknown]
